FAERS Safety Report 12482376 (Version 1)
Quarter: 2016Q2

REPORT INFORMATION
  Report Type: Spontaneous
  Country: JP (occurrence: JP)
  Receive Date: 20160620
  Receipt Date: 20160620
  Transmission Date: 20160815
  Serious: Yes (Other)
  Sender: FDA-Public Use
  Company Number: JP-CORDEN PHARMA LATINA S.P.A.-JP-2016COR000173

PATIENT
  Sex: Female

DRUGS (3)
  1. DOXORUBICIN [Suspect]
     Active Substance: DOXORUBICIN
     Indication: OVARIAN CANCER RECURRENT
     Dosage: 30 MG/M2 (IN 250 ML 5% DEXTROSE SOLUTION, INFUSED OVER 1 HOUR) ON DAY 1
     Route: 042
  2. PACLITAXEL. [Suspect]
     Active Substance: PACLITAXEL
     Indication: OVARIAN CANCER RECURRENT
     Dosage: 60 MG/M2 (IN 250 ML OF SALINE, INFUSED OVER 1 HOUR) ON DAY 1
     Route: 042
  3. CARBOPLATIN. [Suspect]
     Active Substance: CARBOPLATIN
     Indication: OVARIAN CANCER RECURRENT
     Dosage: AUC OF 6 (IN 250 ML OF SALINE, INFUSED OVER 1 HOUR) ON DAY 1 OVER A 28-DAY CYCLE
     Route: 042

REACTIONS (1)
  - Febrile neutropenia [Unknown]
